FAERS Safety Report 7773280 (Version 4)
Quarter: 2018Q1

REPORT INFORMATION
  Report Type: Spontaneous
  Country: US (occurrence: US)
  Receive Date: 20110125
  Receipt Date: 20180328
  Transmission Date: 20180509
  Serious: Yes (Death, Other)
  Sender: FDA-Public Use
  Company Number: US-PFIZER INC-2011012834

PATIENT
  Age: 48 Year
  Sex: Male

DRUGS (1)
  1. CHANTIX [Suspect]
     Active Substance: VARENICLINE TARTRATE
     Indication: SMOKING CESSATION THERAPY
     Dosage: UNK
     Dates: start: 20081219, end: 20100731

REACTIONS (5)
  - Completed suicide [Fatal]
  - Amnesia [Unknown]
  - Intentional overdose [Fatal]
  - Depression [Unknown]
  - Seizure [Unknown]

NARRATIVE: CASE EVENT DATE: 20100731
